FAERS Safety Report 7961515-2 (Version None)
Quarter: 2011Q4

REPORT INFORMATION
  Report Type: 
  Country: None (occurrence: None)
  Receive Date: 20111207
  Receipt Date: 20111129
  Transmission Date: 20120403
  Serious: Yes (Life-Threatening, Other)
  Sender: FDA-Public Use
  Company Number: CA-SP-2011-04544

PATIENT
  Age: 30 Year
  Sex: Female

DRUGS (3)
  1. ANTIHISTAMINES [Concomitant]
     Indication: PRURITUS
  2. TUBERSOL [Suspect]
     Indication: TUBERCULIN TEST
     Dosage: 5.0 UNITS
     Route: 058
     Dates: start: 20100504, end: 20100504
  3. MOXIFLOXACIN [Concomitant]
     Dosage: 1 DOSE
     Dates: start: 20100501, end: 20100501

REACTIONS (6)
  - SWELLING FACE [None]
  - INCORRECT ROUTE OF DRUG ADMINISTRATION [None]
  - SWOLLEN TONGUE [None]
  - URTICARIA [None]
  - OEDEMA PERIPHERAL [None]
  - PRURITUS [None]
